FAERS Safety Report 4931382-X (Version None)
Quarter: 2006Q1

REPORT INFORMATION
  Report Type: 
  Country: None (occurrence: None)
  Receive Date: 20060303
  Receipt Date: 20060220
  Transmission Date: 20060701
  Serious: Yes (Other)
  Sender: FDA-Public Use
  Company Number: PHBS2006VE02912

PATIENT
  Age: 67 Year
  Sex: Female

DRUGS (3)
  1. ALKERAN [Concomitant]
     Dosage: 1 DF EVERY 28 DAYS
  2. PREDNISONE [Concomitant]
  3. ZOMETA [Suspect]
     Indication: MULTIPLE MYELOMA
     Dosage: 4 MG EVERY 28 DAYS
     Dates: start: 20050510, end: 20060220

REACTIONS (2)
  - GINGIVAL ULCERATION [None]
  - NECROSIS [None]
